FAERS Safety Report 22279270 (Version 2)
Quarter: 2023Q4

REPORT INFORMATION
  Report Type: Spontaneous
  Country: US (occurrence: US)
  Receive Date: 20230503
  Receipt Date: 20231208
  Transmission Date: 20240110
  Serious: Yes (Other)
  Sender: FDA-Public Use
  Company Number: US-Blueprint Medicines Corporation-1082

PATIENT
  Age: 72 Year
  Sex: Female

DRUGS (4)
  1. AYVAKIT [Suspect]
     Active Substance: AVAPRITINIB
     Indication: Systemic mastocytosis
  2. AYVAKIT [Suspect]
     Active Substance: AVAPRITINIB
     Route: 065
     Dates: start: 20230124
  3. OJJAARA [Suspect]
     Active Substance: MOMELOTINIB DIHYDROCHLORIDE MONOHYDRATE
     Indication: Systemic mastocytosis
     Route: 048
     Dates: start: 20231120
  4. EPOETIN ALFA [Suspect]
     Active Substance: ERYTHROPOIETIN
     Indication: Product used for unknown indication
     Route: 065

REACTIONS (16)
  - Anaphylactic reaction [Unknown]
  - Neoplasm malignant [Unknown]
  - Surgery [Unknown]
  - Haemoglobin decreased [Unknown]
  - Abnormal organ growth [Unknown]
  - Splenomegaly [Unknown]
  - Drug interaction [Unknown]
  - Intentional dose omission [Unknown]
  - Influenza like illness [Unknown]
  - Unevaluable event [Unknown]
  - Pain in extremity [Unknown]
  - White blood cell count decreased [Unknown]
  - Red blood cell count decreased [Unknown]
  - Platelet count decreased [Unknown]
  - Somnolence [Unknown]
  - Emotional disorder [Unknown]

NARRATIVE: CASE EVENT DATE: 20231121
